FAERS Safety Report 16841524 (Version 1)
Quarter: 2019Q3

REPORT INFORMATION
  Report Type: Spontaneous
  Country: RU (occurrence: RU)
  Receive Date: 20190923
  Receipt Date: 20190923
  Transmission Date: 20191005
  Serious: Yes (Other)
  Sender: FDA-Public Use
  Company Number: RU-ELI_LILLY_AND_COMPANY-RU201909009986

PATIENT
  Age: 79 Year
  Sex: Female

DRUGS (3)
  1. ERBITUX [Suspect]
     Active Substance: CETUXIMAB
     Indication: COLON CANCER STAGE IV
     Dosage: 400 MG/M2, UNKNOWN
     Route: 065
     Dates: start: 201903
  2. ERBITUX [Suspect]
     Active Substance: CETUXIMAB
     Dosage: 250 MG/M2, WEEKLY (1/W)
     Route: 065
     Dates: start: 201903
  3. CAPECITABINE. [Concomitant]
     Active Substance: CAPECITABINE
     Indication: COLON CANCER STAGE IV
     Dosage: 2000 MG/M2, UNKNOWN
     Route: 065
     Dates: start: 201903

REACTIONS (2)
  - Hepatic calcification [Unknown]
  - Off label use [Unknown]

NARRATIVE: CASE EVENT DATE: 2019
